FAERS Safety Report 7015057-1 (Version None)
Quarter: 2010Q3

REPORT INFORMATION
  Report Type: 
  Country: None (occurrence: None)
  Receive Date: 20100927
  Receipt Date: 20070727
  Transmission Date: 20110219
  Serious: Yes (Hospitalization, Other)
  Sender: FDA-Public Use
  Company Number: PHHY2007AU03592

PATIENT
  Sex: Female

DRUGS (10)
  1. CLOZARIL [Suspect]
     Indication: SCHIZOPHRENIA
     Dosage: UNK
     Dates: start: 20001201
  2. CLOZARIL [Suspect]
     Dosage: 200 MG DAILY
  3. CLOZARIL [Suspect]
     Dosage: UNK
     Dates: start: 20010508
  4. RISPERIDONE CONSTA [Concomitant]
     Dosage: 50 MG WEEKLY
  5. CHLORPROMAZINE [Concomitant]
     Dosage: 100 MG, BID
  6. CITALOPRAM HYDROBROMIDE [Concomitant]
     Dosage: 30 MG MANE
  7. RISPERIDONE [Concomitant]
     Dosage: 02 MG NOCTE
  8. DIAZEPAM [Concomitant]
     Dosage: 05 MG NOCTE
  9. VALPROATE SODIUM [Concomitant]
     Dosage: 01 MG, BID
  10. MULTI-VITAMINS [Concomitant]
     Dosage: 01 TAB MANE

REACTIONS (7)
  - CONTUSION [None]
  - MENTAL IMPAIRMENT [None]
  - MYOCLONUS [None]
  - NEUTROPHIL COUNT DECREASED [None]
  - THERMAL BURN [None]
  - TREATMENT NONCOMPLIANCE [None]
  - WHITE BLOOD CELL COUNT DECREASED [None]
